FAERS Safety Report 7040415-9 (Version None)
Quarter: 2010Q4

REPORT INFORMATION
  Report Type: 
  Country: None (occurrence: None)
  Receive Date: 20101008
  Receipt Date: 20101008
  Transmission Date: 20110411
  Serious: No
  Sender: FDA-Public Use
  Company Number: None

PATIENT
  Age: 74 Year
  Sex: Female
  Weight: 90.2658 kg

DRUGS (1)
  1. NEXIUM [Suspect]

REACTIONS (1)
  - HYPOSMIA [None]
